FAERS Safety Report 9776602 (Version 1)
Quarter: 2013Q4

REPORT INFORMATION
  Report Type: Report from Study
  Country: KR (occurrence: KR)
  Receive Date: 20131220
  Receipt Date: 20131220
  Transmission Date: 20140711
  Serious: Yes (Death)
  Sender: FDA-Public Use
  Company Number: KR-ABBVIE-13P-090-1180738-00

PATIENT
  Age: 70 Year
  Sex: Male

DRUGS (2)
  1. KALETRA 200/50 [Suspect]
     Indication: HIV INFECTION
     Route: 048
     Dates: start: 20130611, end: 20131021
  2. ABC/3TC [Concomitant]
     Indication: HIV INFECTION
     Dates: start: 20121029, end: 20131021

REACTIONS (2)
  - Pneumonia [Fatal]
  - Respiratory failure [Fatal]
